FAERS Safety Report 6472543-0 (Version None)
Quarter: 2009Q4

REPORT INFORMATION
  Report Type: 
  Country: None (occurrence: None)
  Receive Date: 20091203
  Receipt Date: 20081209
  Transmission Date: 20100525
  Serious: No
  Sender: FDA-Public Use
  Company Number: US-AMGEN-KDL322781

PATIENT
  Sex: Female

DRUGS (6)
  1. ENBREL [Suspect]
     Indication: RHEUMATOID ARTHRITIS
  2. HYDROCODONE [Concomitant]
  3. METHOTREXATE [Concomitant]
  4. DIAZEPAM [Concomitant]
  5. PROMETHAZINE [Concomitant]
  6. METHYLPREDNISOLONE [Concomitant]

REACTIONS (1)
  - LATEX ALLERGY [None]
